FAERS Safety Report 5363938-7 (Version None)
Quarter: 2007Q2

REPORT INFORMATION
  Report Type: 
  Country: None (occurrence: None)
  Receive Date: 20070620
  Receipt Date: 20070608
  Transmission Date: 20071010
  Serious: Yes (Hospitalization)
  Sender: FDA-Public Use
  Company Number: US-ELI_LILLY_AND_COMPANY-US200704005545

PATIENT
  Age: 26 Year
  Sex: Female

DRUGS (6)
  1. KLONOPIN [Concomitant]
     Indication: ANXIETY
     Dosage: 2 MG, 3/D
  2. RISPERDAL [Concomitant]
     Indication: PSYCHOTIC DISORDER
     Dosage: 4 MG, 2/D
  3. ARTANE [Concomitant]
     Indication: PARKINSON'S DISEASE
     Dosage: 5 MG, 3/D
  4. PARLODEL [Concomitant]
     Indication: PARKINSON'S DISEASE
     Dosage: 2.5 MG, 4/D
  5. MULTIPLE VITAMIN [Concomitant]
     Dosage: UNK, DAILY (1/D)
  6. CYMBALTA [Suspect]
     Indication: MAJOR DEPRESSION
     Dosage: 60 MG, DAILY (1/D)
     Dates: end: 20070429

REACTIONS (4)
  - DEPRESSION [None]
  - DIABETES MELLITUS [None]
  - INTRAOCULAR PRESSURE INCREASED [None]
  - MYOPIA [None]
